FAERS Safety Report 15040803 (Version 3)
Quarter: 2019Q2

REPORT INFORMATION
  Report Type: Spontaneous
  Country: US (occurrence: US)
  Receive Date: 20180621
  Receipt Date: 20190618
  Transmission Date: 20190711
  Serious: Yes (Other)
  Sender: FDA-Public Use
  Company Number: US-BEH-2018091689

PATIENT
  Sex: Male

DRUGS (18)
  1. ALBUTEROL SULFATE. [Concomitant]
     Active Substance: ALBUTEROL SULFATE
  2. LISINOPRIL. [Concomitant]
     Active Substance: LISINOPRIL
  3. METOPROLOL SUCCINATE. [Concomitant]
     Active Substance: METOPROLOL SUCCINATE
  4. SIMVASTATIN. [Concomitant]
     Active Substance: SIMVASTATIN
  5. SPIRONOLACTONE. [Concomitant]
     Active Substance: SPIRONOLACTONE
  6. PRE-FILLED SYRINGE (DEVICE) [Suspect]
     Active Substance: DEVICE
     Dosage: 10 GRAM, QW
     Route: 058
     Dates: start: 2017
  7. METFORMIN HCL [Concomitant]
     Active Substance: METFORMIN HYDROCHLORIDE
  8. PRE-FILLED SYRINGE (DEVICE) [Suspect]
     Active Substance: DEVICE
     Indication: HYPOGAMMAGLOBULINAEMIA
     Dosage: 20 G, QOW
     Route: 058
     Dates: start: 2017
  9. PRE-FILLED SYRINGE (DEVICE) [Suspect]
     Active Substance: DEVICE
     Dosage: UNK GRAM
     Route: 058
  10. TAMSULOSIN HCL [Concomitant]
     Active Substance: TAMSULOSIN HYDROCHLORIDE
     Route: 065
  11. OMEPRAZOLE. [Concomitant]
     Active Substance: OMEPRAZOLE
  12. CETIRIZINE HCL [Concomitant]
     Active Substance: CETIRIZINE HYDROCHLORIDE
  13. SPIRIVA [Concomitant]
     Active Substance: TIOTROPIUM BROMIDE MONOHYDRATE
  14. TRAZODONE HYDROCHLORIDE. [Concomitant]
     Active Substance: TRAZODONE HYDROCHLORIDE
  15. PRE-FILLED SYRINGE (DEVICE) [Suspect]
     Active Substance: DEVICE
     Dosage: UNK
     Route: 058
  16. BUDESONIDE. [Concomitant]
     Active Substance: BUDESONIDE
  17. FINASTERIDE. [Concomitant]
     Active Substance: FINASTERIDE
  18. JANUMET [Concomitant]
     Active Substance: METFORMIN HYDROCHLORIDE\SITAGLIPTIN PHOSPHATE

REACTIONS (6)
  - Lung disorder [Unknown]
  - Gingivitis [Unknown]
  - Drug ineffective [Unknown]
  - Tooth abscess [Unknown]
  - Inappropriate schedule of product administration [Unknown]
  - Fatigue [Unknown]
